FAERS Safety Report 8897359 (Version 1)
Quarter: 2012Q4

REPORT INFORMATION
  Report Type: 
  Country: US (occurrence: US)
  Receive Date: 20121108
  Receipt Date: 20121108
  Transmission Date: 20130627
  Serious: No
  Sender: FDA-Public Use
  Company Number: US-AMGEN-USASP2012027322

PATIENT
  Age: 51 Year
  Sex: Female
  Weight: 54.42 kg

DRUGS (6)
  1. ENBREL [Suspect]
     Indication: PRODUCT USED FOR UNKNOWN INDICATION
     Dosage: 50 mg, qwk
  2. MECLOFENAMATE SODIUM [Concomitant]
     Dosage: 50 mg, UNK
  3. PREDNISONE [Concomitant]
     Dosage: 1 mg, UNK
  4. CALCIUM [Concomitant]
  5. VITAMIN D /00107901/ [Concomitant]
     Dosage: 400 IU, UNK
  6. VITAMIN C                          /00008001/ [Concomitant]
     Dosage: 500 mg, UNK

REACTIONS (1)
  - Pain in jaw [Unknown]
